FAERS Safety Report 12235239 (Version 1)
Quarter: 2016Q2

REPORT INFORMATION
  Report Type: Spontaneous
  Country: US (occurrence: US)
  Receive Date: 20160404
  Receipt Date: 20160404
  Transmission Date: 20160815
  Serious: No
  Sender: FDA-Public Use
  Company Number: US-TARO-2015TAR00203

PATIENT
  Age: 81 Year
  Sex: Male
  Weight: 108.84 kg

DRUGS (3)
  1. ERBITUX [Concomitant]
     Active Substance: CETUXIMAB
  2. FLUOROURACIL TOPICAL CREAM USP 5% [Suspect]
     Active Substance: FLUOROURACIL
     Indication: ACNE
     Dosage: UNK
     Route: 061
     Dates: start: 201502, end: 2015
  3. XELODA [Concomitant]
     Active Substance: CAPECITABINE

REACTIONS (4)
  - Application site pain [Recovering/Resolving]
  - Application site erythema [Recovering/Resolving]
  - Application site vesicles [Recovering/Resolving]
  - Off label use [Recovered/Resolved]

NARRATIVE: CASE EVENT DATE: 201502
